FAERS Safety Report 6611060-1 (Version None)
Quarter: 2010Q1

REPORT INFORMATION
  Report Type: 
  Country: None (occurrence: None)
  Receive Date: 20100303
  Receipt Date: 20100218
  Transmission Date: 20100710
  Serious: Yes (Hospitalization)
  Sender: FDA-Public Use
  Company Number: CH-RANBAXY-2010RR-30932

PATIENT
  Age: 55 Year
  Sex: Female

DRUGS (17)
  1. OLANZAPINE [Suspect]
     Dosage: 10 MG, UNK
  2. LITHIUM CARBONATE [Suspect]
     Indication: DEPRESSION
     Dosage: 900 MG, UNK
  3. PRAVASTATIN [Suspect]
     Indication: HYPERLIPIDAEMIA
  4. SERTRALINE HCL [Concomitant]
     Dosage: 100 MG, UNK
  5. SERTRALINE HCL [Concomitant]
     Dosage: 150 MG, UNK
  6. SERTRALINE HCL [Concomitant]
     Dosage: 200 MG, UNK
  7. ARIPIPRAZOLE [Concomitant]
     Dosage: 60 MG, UNK
  8. ARIPIPRAZOLE [Concomitant]
     Dosage: 45 MG, UNK
  9. ARIPIPRAZOLE [Concomitant]
     Dosage: 30 MG, UNK
  10. ARIPIPRAZOLE [Concomitant]
     Dosage: 30 MG, UNK
  11. RISPERIDONE [Concomitant]
     Dosage: 1 MG, UNK
  12. QUETIAPINE [Concomitant]
     Dosage: 200 MG, UNK
  13. LORAZEPAM [Concomitant]
     Dosage: 4 MG, UNK
  14. LORAZEPAM [Concomitant]
     Dosage: 3 MG, UNK
  15. LORAZEPAM [Concomitant]
     Dosage: 22 MG, UNK
  16. MAGNESIUM [Concomitant]
     Dosage: 7.5 MG, UNK
  17. LEVOTHYROXINE SODIUM [Concomitant]
     Dosage: 0.05 MG, UNK

REACTIONS (2)
  - DRUG INTERACTION [None]
  - RASH [None]
